FAERS Safety Report 16547719 (Version 2)
Quarter: 2021Q3

REPORT INFORMATION
  Report Type: Spontaneous
  Country: US (occurrence: US)
  Receive Date: 20190709
  Receipt Date: 20210709
  Transmission Date: 20211014
  Serious: No
  Sender: FDA-Public Use
  Company Number: US-ASTELLAS-2019US007968

PATIENT
  Sex: Female

DRUGS (2)
  1. MYRBETRIQ [Suspect]
     Active Substance: MIRABEGRON
     Indication: POLLAKIURIA
  2. MYRBETRIQ [Suspect]
     Active Substance: MIRABEGRON
     Indication: CYSTITIS
     Route: 065
     Dates: start: 20190221

REACTIONS (4)
  - Therapeutic product effect incomplete [Unknown]
  - Chromaturia [Unknown]
  - Abdominal distension [Unknown]
  - Illness [Unknown]
